FAERS Safety Report 8855054 (Version 1)
Quarter: 2012Q4

REPORT INFORMATION
  Report Type: 
  Country: US (occurrence: US)
  Receive Date: 20121023
  Receipt Date: 20121023
  Transmission Date: 20130627
  Serious: Yes (Other)
  Sender: FDA-Public Use
  Company Number: US-PFIZER INC-2012262071

PATIENT
  Age: 42 Year
  Sex: Female
  Weight: 74.83 kg

DRUGS (1)
  1. EFFEXOR [Suspect]
     Indication: DEPRESSION
     Dosage: 150 mg, daily
     Dates: start: 2007, end: 201201

REACTIONS (6)
  - Panic attack [Unknown]
  - Anxiety [Unknown]
  - Withdrawal syndrome [Unknown]
  - Impaired driving ability [Unknown]
  - Crying [Unknown]
  - Activities of daily living impaired [Unknown]
